FAERS Safety Report 22150947 (Version 1)
Quarter: 2023Q1

REPORT INFORMATION
  Report Type: Spontaneous
  Country: JP (occurrence: JP)
  Receive Date: 20230329
  Receipt Date: 20230329
  Transmission Date: 20230417
  Serious: Yes (Hospitalization)
  Sender: FDA-Public Use
  Company Number: JP-TEVA-2023-JP-2870769

PATIENT
  Age: 2 Year
  Sex: Male

DRUGS (11)
  1. CEFAZOLIN [Suspect]
     Active Substance: CEFAZOLIN
     Indication: Puncture site infection
     Dosage: 25 MG/KG DAILY; ONCE A DAY
     Route: 042
  2. MEROPENEM [Suspect]
     Active Substance: MEROPENEM
     Indication: Puncture site infection
     Dosage: 15 MG/KG DAILY; ONCE A DAY
     Route: 033
  3. CLARITHROMYCIN [Suspect]
     Active Substance: CLARITHROMYCIN
     Indication: Puncture site infection
     Dosage: 10 MG/KG DAILY; ONCE A DAY
     Route: 048
  4. CEFCAPENE PIVOXIL [Suspect]
     Active Substance: CEFCAPENE PIVOXIL
     Indication: Puncture site infection
     Route: 048
  5. CEFOTAXIME [Suspect]
     Active Substance: CEFOTAXIME SODIUM
     Indication: Puncture site infection
     Dosage: 50 MG/KG DAILY; ONCE A DAY
     Route: 042
  6. SULFAMETHOXAZOLE\TRIMETHOPRIM [Suspect]
     Active Substance: SULFAMETHOXAZOLE\TRIMETHOPRIM
     Indication: Puncture site infection
     Route: 048
  7. VANCOMYCIN [Suspect]
     Active Substance: VANCOMYCIN
     Indication: Puncture site infection
     Dosage: 30 MG/KG
     Route: 042
  8. AMIKACIN [Suspect]
     Active Substance: AMIKACIN
     Indication: Puncture site infection
     Dosage: 8 MG/KG
     Route: 042
  9. CILASTATIN SODIUM\IMIPENEM [Concomitant]
     Active Substance: CILASTATIN SODIUM\IMIPENEM
     Indication: Puncture site infection
     Dosage: 25 MG/KG DAILY; ONCE A DAY
     Route: 065
  10. LINEZOLID [Concomitant]
     Active Substance: LINEZOLID
     Indication: Puncture site infection
     Dosage: 20 MG/KG DAILY; ONCE A DAY
     Route: 042
  11. PIPERACILLIN SODIUM\TAZOBACTAM SODIUM [Concomitant]
     Active Substance: PIPERACILLIN SODIUM\TAZOBACTAM SODIUM
     Indication: Puncture site infection
     Dosage: 100 MG/KG DAILY;
     Route: 065

REACTIONS (2)
  - Ototoxicity [Unknown]
  - Drug ineffective [Unknown]
